FAERS Safety Report 10438985 (Version 1)
Quarter: 2014Q3

REPORT INFORMATION
  Report Type: Spontaneous
  Country: US (occurrence: US)
  Receive Date: 20140908
  Receipt Date: 20140908
  Transmission Date: 20150326
  Serious: No
  Sender: FDA-Public Use
  Company Number: US-BRISTOL-MYERS SQUIBB COMPANY-19187251

PATIENT
  Age: 58 Year
  Sex: Female
  Weight: 70.29 kg

DRUGS (2)
  1. ABILIFY [Suspect]
     Active Substance: ARIPIPRAZOLE
     Dosage: STARTED AT 2 MG INCREASED TO 5 MG
  2. LEXAPRO [Concomitant]
     Active Substance: ESCITALOPRAM OXALATE

REACTIONS (5)
  - Sleep disorder [Unknown]
  - Mental impairment [Unknown]
  - Drug administration error [Unknown]
  - Weight increased [Unknown]
  - Abnormal dreams [Unknown]
